FAERS Safety Report 14497323 (Version 1)
Quarter: 2018Q1

REPORT INFORMATION
  Report Type: Spontaneous
  Country: US (occurrence: US)
  Receive Date: 20180207
  Receipt Date: 20180207
  Transmission Date: 20180509
  Serious: Yes (Hospitalization)
  Sender: FDA-Public Use
  Company Number: US-PFIZER INC-2017554843

PATIENT
  Age: 4 Year
  Sex: Female

DRUGS (2)
  1. CHILDRENS ROBITUSSIN COUGH AND COLD CF [Suspect]
     Active Substance: DEXTROMETHORPHAN HYDROBROMIDE\GUAIFENESIN\PHENYLEPHRINE HYDROCHLORIDE
     Indication: COUGH
  2. CHILDRENS ROBITUSSIN COUGH AND COLD CF [Suspect]
     Active Substance: DEXTROMETHORPHAN HYDROBROMIDE\GUAIFENESIN\PHENYLEPHRINE HYDROCHLORIDE
     Indication: RHINORRHOEA
     Dosage: 20 MG, UNK (ONCE EVERY 4 HOURS)
     Dates: start: 20171210, end: 20171217

REACTIONS (1)
  - Drug ineffective [Recovered/Resolved]

NARRATIVE: CASE EVENT DATE: 20171210
